FAERS Safety Report 24144472 (Version 2)
Quarter: 2024Q3

REPORT INFORMATION
  Report Type: Spontaneous
  Country: FR (occurrence: FR)
  Receive Date: 20240728
  Receipt Date: 20240801
  Transmission Date: 20241016
  Serious: Yes (Hospitalization, Other)
  Sender: MERCK
  Company Number: FR-MERCK-0707FRA00039

PATIENT
  Sex: Female

DRUGS (14)
  1. EMEND [Suspect]
     Active Substance: APREPITANT
     Indication: Prophylaxis of nausea and vomiting
     Route: 048
     Dates: start: 20070425, end: 20070427
  2. EMEND [Suspect]
     Active Substance: APREPITANT
     Route: 048
     Dates: start: 20070521, end: 20070523
  3. EMEND [Suspect]
     Active Substance: APREPITANT
     Route: 048
     Dates: start: 20070611, end: 20070613
  4. ETOPOSIDE [Suspect]
     Active Substance: ETOPOSIDE
     Indication: Lung neoplasm malignant
     Route: 048
     Dates: start: 20070425, end: 20070429
  5. ETOPOSIDE [Suspect]
     Active Substance: ETOPOSIDE
     Route: 048
     Dates: start: 20070521, end: 20070525
  6. ETOPOSIDE [Suspect]
     Active Substance: ETOPOSIDE
     Route: 048
     Dates: start: 20070611, end: 20070615
  7. CISPLATIN [Suspect]
     Active Substance: CISPLATIN
     Indication: Lung neoplasm malignant
     Route: 042
     Dates: start: 20070425, end: 20070429
  8. CISPLATIN [Suspect]
     Active Substance: CISPLATIN
     Route: 042
     Dates: start: 20070521, end: 20070525
  9. CISPLATIN [Suspect]
     Active Substance: CISPLATIN
     Route: 042
     Dates: start: 20070611, end: 20070615
  10. CLOZAPINE [Interacting]
     Active Substance: CLOZAPINE
     Indication: Schizophrenia
     Route: 048
     Dates: start: 20011203
  11. ACEPROMAZINE;ACEPROMETAZINE;CLORAZEPATE DIPOTASSIUM [Concomitant]
     Route: 048
  12. ANETHOLTRITHION [Concomitant]
     Active Substance: ANETHOLTRITHION
     Route: 048
  13. PRAZEPAM [Concomitant]
     Active Substance: PRAZEPAM
     Route: 048
  14. TROPATEPINE [Concomitant]
     Active Substance: TROPATEPINE
     Route: 048

REACTIONS (6)
  - Leukopenia [Recovered/Resolved]
  - Neutropenia [Recovered/Resolved]
  - Leukopenia [Recovered/Resolved]
  - Neutropenia [Recovered/Resolved]
  - Drug interaction [Recovered/Resolved]
  - Drug interaction [Recovered/Resolved]

NARRATIVE: CASE EVENT DATE: 20070608
